FAERS Safety Report 24022371 (Version 1)
Quarter: 2024Q2

REPORT INFORMATION
  Report Type: Spontaneous
  Country: US (occurrence: US)
  Receive Date: 20240627
  Receipt Date: 20240627
  Transmission Date: 20240716
  Serious: Yes (Life-Threatening, Hospitalization, Other)
  Sender: FDA-Public Use
  Company Number: None

PATIENT
  Age: 72 Year
  Sex: Female

DRUGS (1)
  1. METFORMIN [Suspect]
     Active Substance: METFORMIN HYDROCHLORIDE
     Indication: Product used for unknown indication

REACTIONS (5)
  - Acute kidney injury [Recovered/Resolved]
  - Encephalopathy [Recovered/Resolved]
  - Lactic acidosis [Recovered/Resolved]
  - Blindness transient [Recovered/Resolved]
  - Metabolic acidosis [Recovered/Resolved]
